FAERS Safety Report 16625792 (Version 5)
Quarter: 2019Q4

REPORT INFORMATION
  Report Type: Report from Study
  Country: CA (occurrence: CA)
  Receive Date: 20190724
  Receipt Date: 20191029
  Transmission Date: 20200122
  Serious: Yes (Other)
  Sender: FDA-Public Use
  Company Number: CA-GLAXOSMITHKLINE-CA2019AMR132482

PATIENT
  Sex: Female

DRUGS (1)
  1. MEPOLIZUMAB [Suspect]
     Active Substance: MEPOLIZUMAB
     Indication: ASTHMA
     Dosage: 100 MG, Z(MONTHLY)
     Route: 042
     Dates: start: 20170707

REACTIONS (9)
  - Spinal column injury [Unknown]
  - Multiple sclerosis [Unknown]
  - Oropharyngeal discomfort [Unknown]
  - Eye movement disorder [Unknown]
  - Malaise [Not Recovered/Not Resolved]
  - Eye pain [Unknown]
  - Eye disorder [Unknown]
  - Abdominal discomfort [Unknown]
  - Fall [Unknown]
